FAERS Safety Report 9808080 (Version 1)
Quarter: 2014Q1

REPORT INFORMATION
  Report Type: Spontaneous
  Country: US (occurrence: US)
  Receive Date: 20140110
  Receipt Date: 20140110
  Transmission Date: 20141002
  Serious: Yes (Hospitalization, Other)
  Sender: FDA-Public Use
  Company Number: US-JNJFOC-20140100651

PATIENT
  Age: 63 Year
  Sex: Female
  Weight: 68.04 kg

DRUGS (3)
  1. ELMIRON [Suspect]
     Indication: CYSTITIS INTERSTITIAL
     Dosage: INITIATED ABOUT 8 OR 9 YEARS AGO
     Route: 048
  2. CYSTAQ COMPLEX [Concomitant]
     Indication: CYSTITIS INTERSTITIAL
     Route: 065
  3. PROTONIX [Concomitant]
     Indication: GASTROOESOPHAGEAL REFLUX DISEASE
     Dosage: INTIATED ON UNSPECIFIED DATE OF 2013
     Route: 065
     Dates: start: 2013

REACTIONS (5)
  - Arthritis [Not Recovered/Not Resolved]
  - Mammoplasty [Unknown]
  - Ligament rupture [Recovered/Resolved]
  - Hernia [Recovered/Resolved]
  - Post laminectomy syndrome [Not Recovered/Not Resolved]
